FAERS Safety Report 24703006 (Version 1)
Quarter: 2024Q4

REPORT INFORMATION
  Report Type: Report from Study
  Country: GB (occurrence: GB)
  Receive Date: 20241205
  Receipt Date: 20241205
  Transmission Date: 20250114
  Serious: Yes (Other)
  Sender: ALEXION PHARMACEUTICALS
  Company Number: GB-AstraZeneca-CH-00758501A

PATIENT

DRUGS (4)
  1. OLAPARIB [Suspect]
     Active Substance: OLAPARIB
  2. OLAPARIB [Suspect]
     Active Substance: OLAPARIB
  3. OLAPARIB [Suspect]
     Active Substance: OLAPARIB
  4. OLAPARIB [Suspect]
     Active Substance: OLAPARIB

REACTIONS (1)
  - Disease progression [Unknown]
